FAERS Safety Report 24867513 (Version 1)
Quarter: 2025Q1

REPORT INFORMATION
  Report Type: Spontaneous
  Country: IT (occurrence: IT)
  Receive Date: 20250121
  Receipt Date: 20250121
  Transmission Date: 20250409
  Serious: Yes (Other)
  Sender: MYLAN
  Company Number: IT-ESTEVE-2018-00241

PATIENT

DRUGS (1)
  1. PREGABALIN [Suspect]
     Active Substance: PREGABALIN
     Indication: Polyneuropathy
     Dosage: 50 MG, TID (50 MG, 3X/DAY)
     Route: 065

REACTIONS (3)
  - Drug ineffective [Unknown]
  - Cholestatic liver injury [Recovered/Resolved]
  - Liver injury [Recovered/Resolved]
